FAERS Safety Report 7732990-3 (Version None)
Quarter: 2011Q3

REPORT INFORMATION
  Report Type: 
  Country: None (occurrence: None)
  Receive Date: 20110907
  Receipt Date: 20110901
  Transmission Date: 20111222
  Serious: Yes (Death, Hospitalization)
  Sender: FDA-Public Use
  Company Number: PHHY2011EC78483

PATIENT
  Sex: Female

DRUGS (2)
  1. ZOLEDRONOC ACID [Suspect]
     Indication: OSTEOPOROSIS
     Dosage: 5MG/100ML/PER YEAR
     Route: 042
     Dates: start: 20101215
  2. LOSARTAN POTASSIUM [Concomitant]
     Dosage: UNK UKN, UNK

REACTIONS (3)
  - PANCREATITIS [None]
  - BLOOD URINE PRESENT [None]
  - DEATH [None]
